FAERS Safety Report 4447156-2 (Version None)
Quarter: 2004Q3

REPORT INFORMATION
  Report Type: 
  Country: None (occurrence: None)
  Receive Date: 20040908
  Receipt Date: 20040908
  Transmission Date: 20050211
  Serious: Yes (Hospitalization)
  Sender: FDA-Public Use
  Company Number: None

PATIENT
  Sex: Female
  Weight: 64 kg

DRUGS (10)
  1. LITHIUM CARBONATE [Suspect]
     Indication: BIPOLAR DISORDER
     Dosage: 300MG MWF, SUN PO 450MG T-TH-SAT PO
     Route: 048
     Dates: start: 19780101
  2. ASPIRIN [Concomitant]
  3. LAMOTRIGINE [Concomitant]
  4. ATORVASTATIN CALCIUM [Concomitant]
  5. LOSARTAN POTASSIUM [Concomitant]
  6. LANTUS [Concomitant]
  7. RISPERIDONE [Concomitant]
  8. ATENOLOL [Concomitant]
  9. TRAZODONE [Concomitant]
  10. BENZOTROPINE [Concomitant]

REACTIONS (7)
  - DROOLING [None]
  - DRUG INEFFECTIVE [None]
  - DYSARTHRIA [None]
  - MANIA [None]
  - RENAL IMPAIRMENT [None]
  - SEDATION [None]
  - THERAPEUTIC AGENT TOXICITY [None]
